FAERS Safety Report 15552751 (Version 1)
Quarter: 2018Q4

REPORT INFORMATION
  Report Type: Report from Study
  Country: IN (occurrence: IN)
  Receive Date: 20181025
  Receipt Date: 20181025
  Transmission Date: 20190205
  Serious: Yes (Hospitalization)
  Sender: FDA-Public Use
  Company Number: PHHY2018IN132552

PATIENT
  Age: 95 Year
  Sex: Male
  Weight: 76 kg

DRUGS (1)
  1. TRAVACOM (ALC) [Suspect]
     Active Substance: TIMOLOL MALEATE\TRAVOPROST
     Indication: GLAUCOMA
     Dosage: UNK
     Route: 047
     Dates: start: 20180602

REACTIONS (5)
  - Dyspnoea [Recovering/Resolving]
  - Visual impairment [Not Recovered/Not Resolved]
  - Cardiac disorder [Recovering/Resolving]
  - Pulmonary oedema [Recovering/Resolving]
  - Cerebrovascular accident [Recovering/Resolving]

NARRATIVE: CASE EVENT DATE: 20180815
